FAERS Safety Report 5609233-X (Version None)
Quarter: 2008Q1

REPORT INFORMATION
  Report Type: 
  Country: None (occurrence: None)
  Receive Date: 20080131
  Receipt Date: 20080125
  Transmission Date: 20080703
  Serious: Yes (Hospitalization)
  Sender: FDA-Public Use
  Company Number: US-ASTRAZENECA-2007UW28284

PATIENT
  Age: 22 Year
  Sex: Male
  Weight: 70.5 kg

DRUGS (9)
  1. SEROQUEL [Suspect]
     Indication: PSYCHOTIC DISORDER
     Dosage: 500 MG AT 5 P.M. AND 1000 MG AT HS
     Route: 048
     Dates: start: 20071109
  2. SEROQUEL [Suspect]
     Route: 048
     Dates: start: 20071114
  3. SEROQUEL [Suspect]
     Route: 048
     Dates: start: 20071115
  4. SEROQUEL [Suspect]
     Route: 048
     Dates: start: 20071126
  5. SEROQUEL [Suspect]
     Route: 048
     Dates: start: 20071129
  6. SEROQUEL [Suspect]
     Dosage: SPLIT DOSING
     Route: 048
     Dates: start: 20071203
  7. DEPAKOTE [Suspect]
     Indication: AFFECTIVE DISORDER
     Route: 048
     Dates: start: 20071109
  8. PROLIXIN [Concomitant]
     Indication: PSYCHOTIC DISORDER
     Route: 048
     Dates: start: 20071018, end: 20071113
  9. ZYPREXA ZYDIS [Concomitant]
     Dates: end: 20071113

REACTIONS (1)
  - NEUTROPENIA [None]
